FAERS Safety Report 19351923 (Version 15)
Quarter: 2022Q1

REPORT INFORMATION
  Report Type: Report from Study
  Country: BR (occurrence: None)
  Receive Date: 20210531
  Receipt Date: 20220301
  Transmission Date: 20220423
  Serious: Yes (Death, Life-Threatening, Hospitalization)
  Sender: FDA-Public Use
  Company Number: BR-ROCHE-2838354

PATIENT
  Age: 54 Year
  Sex: Male
  Weight: 81.8 kg

DRUGS (9)
  1. OBINUTUZUMAB [Suspect]
     Active Substance: OBINUTUZUMAB
     Indication: Follicular lymphoma
     Dosage: ON 31/MAR/2021, 1000 MG IV DOSE OF LAST STUDY DRUG 1 ADMINISTERED PRIOR TO AE (ADVERSE EVENT) ONSET
     Route: 042
     Dates: start: 20200527
  2. OBINUTUZUMAB [Suspect]
     Active Substance: OBINUTUZUMAB
     Indication: Hiatus hernia
  3. BENDAMUSTINE [Suspect]
     Active Substance: BENDAMUSTINE
     Indication: Follicular lymphoma
     Dosage: MOST RECENT DOSE OF STUDY DRUG 2 PRIOR TO ADVERSE EVENT ONSET 15/OCT/2020 174.60 MG
     Route: 042
     Dates: start: 20200527
  4. OMEPRAZOLE [Concomitant]
     Active Substance: OMEPRAZOLE
     Indication: Hiatus hernia
  5. HYDROCHLOROTHIAZIDE [Concomitant]
     Active Substance: HYDROCHLOROTHIAZIDE
     Indication: Hypertension
  6. FINASTERIDE [Concomitant]
     Active Substance: FINASTERIDE
  7. DOXAZOSIN [Concomitant]
     Active Substance: DOXAZOSIN MESYLATE
  8. SODIUM BICARBONATE [Concomitant]
     Active Substance: SODIUM BICARBONATE
     Dates: start: 20210702, end: 20210702
  9. MIDAZOLAM [Concomitant]
     Active Substance: MIDAZOLAM
     Indication: Sepsis

REACTIONS (6)
  - COVID-19 pneumonia [Fatal]
  - Acute respiratory failure [Recovered/Resolved]
  - Severe acute respiratory syndrome [Recovered/Resolved]
  - Sepsis [Not Recovered/Not Resolved]
  - Acute kidney injury [Not Recovered/Not Resolved]
  - Hypokalaemia [Recovered/Resolved]

NARRATIVE: CASE EVENT DATE: 20210501
